FAERS Safety Report 4279261-8 (Version None)
Quarter: 2004Q1

REPORT INFORMATION
  Report Type: 
  Country: None (occurrence: None)
  Receive Date: 20040126
  Receipt Date: 20040126
  Transmission Date: 20041129
  Serious: Yes (Other)
  Sender: FDA-Public Use
  Company Number: None

PATIENT
  Age: 76 Year
  Sex: Female
  Weight: 60.3284 kg

DRUGS (9)
  1. METFORMIN HCL [Suspect]
     Indication: DIABETES MELLITUS
     Dosage: 1 BID
     Dates: start: 20031201, end: 20040116
  2. ACCUPRIL [Concomitant]
  3. DYAZIDE [Concomitant]
  4. CEKEBREXM [Concomitant]
  5. PANREASE [Concomitant]
  6. LEVSIN [Concomitant]
  7. PREVACID [Concomitant]
  8. LIPITOR [Concomitant]
  9. GLUCOTROL [Concomitant]

REACTIONS (2)
  - BLOOD GLUCOSE INCREASED [None]
  - PHARMACEUTICAL PRODUCT COMPLAINT [None]
